FAERS Safety Report 14375169 (Version 4)
Quarter: 2018Q1

REPORT INFORMATION
  Report Type: Report from Study
  Country: FR (occurrence: FR)
  Receive Date: 20180111
  Receipt Date: 20180216
  Transmission Date: 20180509
  Serious: Yes (Hospitalization, Other)
  Sender: FDA-Public Use
  Company Number: FR-VIIV HEALTHCARE LIMITED-FR2018GSK002197

PATIENT
  Age: 51 Year
  Sex: Male

DRUGS (4)
  1. DOLUTEGRAVIR [Suspect]
     Active Substance: DOLUTEGRAVIR
     Indication: HIV INFECTION
     Dosage: 50 MG, BID
     Route: 048
     Dates: start: 20140519
  2. EPIVIR [Suspect]
     Active Substance: LAMIVUDINE
     Indication: HIV INFECTION
     Dosage: 300 MG, QD
     Route: 065
     Dates: start: 20140519
  3. PREZISTA [Suspect]
     Active Substance: DARUNAVIR ETHANOLATE
     Indication: HIV INFECTION
     Dosage: 600 MG, BID
     Route: 065
     Dates: start: 20140519
  4. NORVIR [Suspect]
     Active Substance: RITONAVIR
     Indication: HIV INFECTION
     Dosage: 100 MG, BID
     Route: 065
     Dates: start: 20140519

REACTIONS (18)
  - Asthma [Unknown]
  - Anal cancer stage 0 [Recovered/Resolved]
  - Vomiting [Unknown]
  - Anogenital dysplasia [Recovered/Resolved]
  - Nausea [Unknown]
  - Herpes simplex [Unknown]
  - Anogenital warts [Unknown]
  - Anogenital warts [Unknown]
  - Arthralgia [Unknown]
  - Papilloma excision [Unknown]
  - Depressed mood [Unknown]
  - Asthenia [Unknown]
  - Diarrhoea [Unknown]
  - Thrombocytopenia [Unknown]
  - Muscle spasms [Unknown]
  - Asthma [Unknown]
  - Hallucination [Unknown]
  - Emphysema [Unknown]

NARRATIVE: CASE EVENT DATE: 2014
